FAERS Safety Report 7415288-2 (Version None)
Quarter: 2011Q2

REPORT INFORMATION
  Report Type: 
  Country: None (occurrence: None)
  Receive Date: 20110414
  Receipt Date: 20110408
  Transmission Date: 20111010
  Serious: Yes (Other)
  Sender: FDA-Public Use
  Company Number: HR-ROCHE-770490

PATIENT
  Age: 66 Year
  Sex: Female
  Weight: 54 kg

DRUGS (2)
  1. BONIVA [Suspect]
     Indication: OSTEOPOROSIS
     Route: 048
     Dates: start: 20091028
  2. VISTAGAN [Concomitant]
     Dosage: DOSE:1 GTT DROP(S)
     Route: 048
     Dates: start: 20080828

REACTIONS (5)
  - ARTHRALGIA [None]
  - TINNITUS [None]
  - BONE PAIN [None]
  - FLATULENCE [None]
  - ABDOMINAL DISCOMFORT [None]
